FAERS Safety Report 12402489 (Version 4)
Quarter: 2017Q2

REPORT INFORMATION
  Report Type: Spontaneous
  Country: US (occurrence: US)
  Receive Date: 20160525
  Receipt Date: 20170606
  Transmission Date: 20170830
  Serious: No
  Sender: FDA-Public Use
  Company Number: US-SA-2016SA046985

PATIENT
  Age: 78 Year
  Sex: Female

DRUGS (1)
  1. LANTUS [Suspect]
     Active Substance: INSULIN GLARGINE
     Dosage: DOSE: 50/40 UNITS
     Route: 065

REACTIONS (4)
  - Visual impairment [Unknown]
  - Drug administration error [Unknown]
  - Headache [Unknown]
  - Abdominal pain upper [Unknown]
